FAERS Safety Report 6968690-7 (Version None)
Quarter: 2010Q3

REPORT INFORMATION
  Report Type: 
  Country: None (occurrence: None)
  Receive Date: 20100901
  Receipt Date: 20100820
  Transmission Date: 20110219
  Serious: Yes (Death)
  Sender: FDA-Public Use
  Company Number: DKLU1063712

PATIENT
  Age: 61 Year
  Sex: Female
  Weight: 108.5 kg

DRUGS (4)
  1. FLUPHENAZINE DECANOATE [Suspect]
  2. COGENTIN [Suspect]
  3. OLANZAPINE [Suspect]
     Dosage: 20 MG OVER 21 HOURS, INTRAMUSCULAR
     Route: 030
  4. RISPERIDONE [Suspect]
     Dosage: 2 MG MILLIGRAM(S), ORAL
     Route: 048

REACTIONS (1)
  - ARTERIOSCLEROSIS [None]
